FAERS Safety Report 18372993 (Version 1)
Quarter: 2020Q4

REPORT INFORMATION
  Report Type: Spontaneous
  Country: GB (occurrence: GB)
  Receive Date: 20201012
  Receipt Date: 20201012
  Transmission Date: 20210114
  Serious: Yes (Life-Threatening, Hospitalization, Disabling, Other)
  Sender: FDA-Public Use
  Company Number: GB-TEVA-2020-GB-1836575

PATIENT
  Age: 64 Year
  Sex: Female
  Weight: 84 kg

DRUGS (6)
  1. NITROFURANTOIN. [Suspect]
     Active Substance: NITROFURANTOIN
     Indication: PROPHYLAXIS URINARY TRACT INFECTION
     Dosage: 50 MILLIGRAM DAILY; AT NIGHT.
     Route: 048
     Dates: start: 201907, end: 20200809
  2. TRIMETHOPRIM. [Concomitant]
     Active Substance: TRIMETHOPRIM
     Dates: start: 20200803
  3. PREDNISOLONE. [Concomitant]
     Active Substance: PREDNISOLONE
     Dates: start: 20200713
  4. SOLIFENACIN [Concomitant]
     Active Substance: SOLIFENACIN
  5. ERYTHROMYCIN. [Concomitant]
     Active Substance: ERYTHROMYCIN
     Dates: start: 201912
  6. PARACETAMOL [Concomitant]
     Active Substance: ACETAMINOPHEN
     Dosage: 4 GM

REACTIONS (8)
  - Fatigue [Unknown]
  - Rash maculo-papular [Unknown]
  - Acute hepatic failure [Unknown]
  - Abdominal distension [Unknown]
  - Coagulopathy [Unknown]
  - Jaundice [Unknown]
  - Acute kidney injury [Unknown]
  - Ascites [Unknown]

NARRATIVE: CASE EVENT DATE: 202007
